FAERS Safety Report 5175329-2 (Version None)
Quarter: 2006Q4

REPORT INFORMATION
  Report Type: 
  Country: None (occurrence: None)
  Receive Date: 20061215
  Receipt Date: 20061211
  Transmission Date: 20070319
  Serious: Yes (Hospitalization, Other)
  Sender: FDA-Public Use
  Company Number: 2006UW27392

PATIENT
  Age: 54 Year
  Sex: Female
  Weight: 72.6 kg

DRUGS (3)
  1. PULMICORT RESPULES [Suspect]
     Indication: ASTHMA
     Dosage: 0.5MG/2ML
     Route: 055
     Dates: start: 20061001
  2. BENADRYL [Concomitant]
  3. ATROVENT [Concomitant]

REACTIONS (3)
  - CHEST PAIN [None]
  - DYSPNOEA [None]
  - URTICARIA [None]
